FAERS Safety Report 10496746 (Version 2)
Quarter: 2016Q1

REPORT INFORMATION
  Report Type: Report from Study
  Country: US (occurrence: US)
  Receive Date: 20141006
  Receipt Date: 20160308
  Transmission Date: 20160525
  Serious: No
  Sender: FDA-Public Use
  Company Number: US-AMGEN INC.-USASP2014074335

PATIENT
  Age: 53 Year
  Sex: Female
  Weight: 97.51 kg

DRUGS (1)
  1. ENBREL [Suspect]
     Active Substance: ETANERCEPT
     Indication: RHEUMATOID ARTHRITIS
     Dosage: 50 MG, QWK
     Route: 058
     Dates: start: 201401

REACTIONS (3)
  - Colonoscopy [Unknown]
  - Sinusitis [Unknown]
  - Malaise [Unknown]
